FAERS Safety Report 6313954-3 (Version None)
Quarter: 2009Q3

REPORT INFORMATION
  Report Type: 
  Country: None (occurrence: None)
  Receive Date: 20090818
  Receipt Date: 20090813
  Transmission Date: 20100115
  Serious: Yes (Hospitalization)
  Sender: FDA-Public Use
  Company Number: US-ASTRAZENECA-2009SE07926

PATIENT
  Age: 43 Year
  Sex: Female

DRUGS (2)
  1. SEROQUEL [Suspect]
     Indication: ACUTE PSYCHOSIS
     Dosage: 300MG AND 150 MG
     Route: 048
  2. CYMBALTA [Concomitant]

REACTIONS (1)
  - ACUTE PSYCHOSIS [None]
